FAERS Safety Report 8365307-4 (Version None)
Quarter: 2012Q2

REPORT INFORMATION
  Report Type: 
  Country: None (occurrence: None)
  Receive Date: 20120516
  Receipt Date: 20120514
  Transmission Date: 20120825
  Serious: Yes (Death, Hospitalization)
  Sender: FDA-Public Use
  Company Number: FR-GENZYME-CLOF-1002130

PATIENT
  Sex: Male
  Weight: 75 kg

DRUGS (2)
  1. OMIX [Concomitant]
     Indication: BENIGN PROSTATIC HYPERPLASIA
     Dosage: 1 GEL QD
     Route: 048
  2. CLOFARABINE [Suspect]
     Indication: MYELODYSPLASTIC SYNDROME
     Dosage: 19 MG, QD
     Route: 042
     Dates: start: 20120411, end: 20120420

REACTIONS (4)
  - BRONCHOPNEUMOPATHY [None]
  - HAEMORRHAGIC DISORDER [None]
  - ESCHERICHIA INFECTION [None]
  - FEBRILE NEUTROPENIA [None]
